FAERS Safety Report 6288967-0 (Version None)
Quarter: 2009Q3

REPORT INFORMATION
  Report Type: 
  Country: None (occurrence: None)
  Receive Date: 20090729
  Receipt Date: 20090724
  Transmission Date: 20100115
  Serious: No
  Sender: FDA-Public Use
  Company Number: US-B.I. PHARMACEUTICALS,INC./RIDGEFIELD-2009-BP-08845BP

PATIENT
  Sex: Female

DRUGS (7)
  1. SPIRIVA [Suspect]
     Indication: CHRONIC OBSTRUCTIVE PULMONARY DISEASE
     Dosage: 18 MCG
     Route: 055
     Dates: start: 20090401
  2. KLONOPIN [Concomitant]
     Indication: ANXIETY
  3. XANAX [Concomitant]
     Indication: ANXIETY
  4. NASONEX [Concomitant]
     Indication: SEASONAL ALLERGY
     Dates: start: 20090401
  5. ZYRTEC [Concomitant]
     Indication: SEASONAL ALLERGY
  6. VISINE EYE DROPS [Concomitant]
     Indication: EYE PAIN
  7. MULTI-VITAMIN [Concomitant]
     Indication: EYE PAIN
     Route: 048
     Dates: end: 20090501

REACTIONS (1)
  - ALOPECIA [None]
